APPROVED DRUG PRODUCT: MINOCYCLINE HYDROCHLORIDE
Active Ingredient: MINOCYCLINE HYDROCHLORIDE
Strength: EQ 65MG BASE
Dosage Form/Route: TABLET, EXTENDED RELEASE;ORAL
Application: A091118 | Product #003
Applicant: SUN PHARMACEUTICAL INDUSTRIES LTD
Approved: Dec 3, 2019 | RLD: No | RS: No | Type: DISCN